FAERS Safety Report 8714844 (Version 5)
Quarter: 2012Q4

REPORT INFORMATION
  Report Type: 
  Country: JP (occurrence: JP)
  Receive Date: 20120809
  Receipt Date: 20121127
  Transmission Date: 20130627
  Serious: Yes (Hospitalization)
  Sender: FDA-Public Use
  Company Number: JP-PFIZER INC-2012187578

PATIENT
  Age: 62 Year
  Sex: Male
  Weight: 55 kg

DRUGS (8)
  1. LYRICA [Suspect]
     Indication: NEUROPATHY
     Dosage: 75 mg, 2x/day
     Route: 048
     Dates: start: 20110914, end: 20110921
  2. PACLITAXEL [Suspect]
     Indication: LUNG CANCER
     Dosage: 270 mg, 1x/day
     Route: 041
     Dates: start: 20110907, end: 20110907
  3. CARBOPLATIN [Suspect]
     Indication: LUNG CANCER
     Dosage: 550 mg, 1x/day
     Route: 041
     Dates: start: 20110907, end: 20110907
  4. VANCOMYCIN HCL [Suspect]
     Indication: FEBRILE NEUTROPENIA
     Dosage: 500 mg, 2x/day
     Route: 041
     Dates: start: 20110920, end: 20110921
  5. MEROPEN [Suspect]
     Indication: FEBRILE NEUTROPENIA
     Dosage: 0.5 g, 3x/day
     Route: 041
     Dates: start: 20110912, end: 20110918
  6. PAZUFLOXACIN MESILATE [Suspect]
     Indication: FEBRILE NEUTROPENIA
     Dosage: 500 mg, 2x/day
     Route: 041
     Dates: start: 20110918, end: 20110921
  7. FUNGUARD [Suspect]
     Indication: FEBRILE NEUTROPENIA
     Dosage: 150 mg, 2x/day
     Route: 041
     Dates: start: 20110918, end: 20110921
  8. PLATOSIN [Concomitant]
     Dosage: UNK

REACTIONS (7)
  - Pneumonia [Recovering/Resolving]
  - Neutropenia [Recovering/Resolving]
  - Lymphocyte stimulation test positive [None]
  - Hypoaesthesia [None]
  - Neuropathy peripheral [None]
  - Febrile neutropenia [None]
  - Inflammation [None]
